FAERS Safety Report 4992594-2 (Version None)
Quarter: 2006Q1

REPORT INFORMATION
  Report Type: 
  Country: None (occurrence: None)
  Receive Date: 20060315
  Receipt Date: 20050818
  Transmission Date: 20060701
  Serious: Yes (Other)
  Sender: FDA-Public Use
  Company Number: USA0508105788

PATIENT
  Age: 101 Year
  Sex: Male

DRUGS (1)
  1. GEMZAR [Suspect]
     Indication: BLADDER CANCER
     Dates: start: 20050810

REACTIONS (3)
  - CELLULITIS [None]
  - HAEMATURIA [None]
  - HAEMOGLOBIN DECREASED [None]
